FAERS Safety Report 18048921 (Version 1)
Quarter: 2020Q3

REPORT INFORMATION
  Report Type: Spontaneous
  Country: US (occurrence: US)
  Receive Date: 20200720
  Receipt Date: 20200720
  Transmission Date: 20201103
  Serious: Yes (Hospitalization)
  Sender: FDA-Public Use
  Company Number: None

PATIENT
  Age: 78 Year
  Sex: Female

DRUGS (11)
  1. ATORVASTATIN [Concomitant]
     Active Substance: ATORVASTATIN
  2. CEPHALEXIN. [Concomitant]
     Active Substance: CEPHALEXIN
  3. ESOMEPRA MAG [Concomitant]
  4. GABAPENTIN. [Concomitant]
     Active Substance: GABAPENTIN
  5. FUROSEMIDE. [Concomitant]
     Active Substance: FUROSEMIDE
  6. METRANIDONAZOL [Concomitant]
  7. LOSARTAN. [Concomitant]
     Active Substance: LOSARTAN
  8. WARFARIN [Concomitant]
     Active Substance: WARFARIN
  9. HUMIRA [Suspect]
     Active Substance: ADALIMUMAB
     Indication: CROHN^S DISEASE
     Route: 058
     Dates: start: 20180106
  10. POT CL MICRO [Concomitant]
  11. METOPROL SUC [Concomitant]

REACTIONS (1)
  - Cholecystitis infective [None]

NARRATIVE: CASE EVENT DATE: 20200710
